FAERS Safety Report 16302611 (Version 17)
Quarter: 2020Q1

REPORT INFORMATION
  Report Type: Report from Study
  Country: CN (occurrence: CN)
  Receive Date: 20190513
  Receipt Date: 20200217
  Transmission Date: 20200409
  Serious: Yes (Death, Hospitalization)
  Sender: FDA-Public Use
  Company Number: CN-ROCHE-2314505

PATIENT
  Age: 54 Year
  Sex: Male
  Weight: 57.5 kg

DRUGS (13)
  1. COMPOUND AMINOPHENAZONE AND BARBITAL [Concomitant]
     Route: 065
     Dates: start: 20190525, end: 20190525
  2. ATEZOLIZUMAB. [Suspect]
     Active Substance: ATEZOLIZUMAB
     Indication: HEPATOCELLULAR CARCINOMA
     Dosage: MOST RECENT DOSE (1200 MG) ATEZOLIZUMAB ON 04/APR/2019?ON DAY 1 OF EACH 21 DAY CYCLE (AS PER PROTOCO
     Route: 042
     Dates: start: 20190315
  3. SPIRONOLACTONE. [Concomitant]
     Active Substance: SPIRONOLACTONE
     Dosage: RECEIVED DURING HOSPITALIZATION
     Route: 065
  4. COMPOUND DEXAMETHASONE ACETATE [CAMPHOR;DEXAMETHASONE ACETATE;EUCALYPT [Concomitant]
     Indication: PRURITUS
     Route: 065
     Dates: start: 201904, end: 201906
  5. SPIRONOLACTONE. [Concomitant]
     Active Substance: SPIRONOLACTONE
     Route: 065
     Dates: start: 20190519, end: 20190523
  6. ADEMETIONINE 1,4-BUTANEDISULFONATE [Concomitant]
     Route: 065
     Dates: start: 20190602, end: 20190603
  7. PREDNISONE ACETATE [Concomitant]
     Active Substance: PREDNISONE ACETATE
     Route: 048
     Dates: start: 20190517, end: 20190522
  8. MEROPENEM. [Concomitant]
     Active Substance: MEROPENEM
     Dosage: RECEIVED DURING HOSPITALIZATION
     Route: 065
  9. BEVACIZUMAB. [Suspect]
     Active Substance: BEVACIZUMAB
     Indication: HEPATOCELLULAR CARCINOMA
     Dosage: MOST RECENT DOSE OF BEVACIZUMAB (855MG) ON 26/APR/2019.?ON DAY 1 OF EACH 21 DAY CYCLE (AS PER PROTOC
     Route: 042
     Dates: start: 20190315
  10. VITAMIN C [Concomitant]
     Active Substance: ASCORBIC ACID
     Route: 065
     Dates: start: 20190601, end: 20190601
  11. METOCLOPRAMIDE HYDROCHLORIDE. [Concomitant]
     Active Substance: METOCLOPRAMIDE HYDROCHLORIDE
     Route: 065
     Dates: start: 20190601, end: 20190601
  12. MEROPENEM. [Concomitant]
     Active Substance: MEROPENEM
     Route: 042
     Dates: start: 20190525, end: 20190603
  13. VITAMIN C [Concomitant]
     Active Substance: ASCORBIC ACID
     Route: 065
     Dates: start: 20190523, end: 20190523

REACTIONS (1)
  - Hepatic function abnormal [Not Recovered/Not Resolved]

NARRATIVE: CASE EVENT DATE: 20190403
